FAERS Safety Report 21952571 (Version 1)
Quarter: 2023Q1

REPORT INFORMATION
  Report Type: Report from Study
  Country: US (occurrence: US)
  Receive Date: 20230203
  Receipt Date: 20230203
  Transmission Date: 20230418
  Serious: Yes (Hospitalization)
  Sender: FDA-Public Use
  Company Number: US-EXELIXIS-CABO-21047054

PATIENT
  Age: 64 Year
  Sex: Male
  Weight: 92.97 kg

DRUGS (4)
  1. CABOMETYX [Suspect]
     Active Substance: CABOZANTINIB S-MALATE
     Indication: Renal cancer
     Dosage: TWO TABLETS (40 MG) THREE TIME PER WEEK AND ONE TABLET (20 MG) FOUR TIMES PER WEEK
     Route: 048
     Dates: start: 202008
  2. LENVIMA [Suspect]
     Active Substance: LENVATINIB
     Indication: Product used for unknown indication
     Dosage: UNK
  3. TYLENOL [Concomitant]
     Active Substance: ACETAMINOPHEN
  4. ZYRTEC [Concomitant]
     Active Substance: CETIRIZINE HYDROCHLORIDE

REACTIONS (6)
  - Constipation [Unknown]
  - Herpes zoster [Unknown]
  - Pneumothorax [Unknown]
  - Abdominal pain [Unknown]
  - Blood pressure increased [Unknown]
  - Decreased appetite [Unknown]

NARRATIVE: CASE EVENT DATE: 20211221
